FAERS Safety Report 6618974-7 (Version None)
Quarter: 2010Q1

REPORT INFORMATION
  Report Type: 
  Country: None (occurrence: None)
  Receive Date: 20100308
  Receipt Date: 20100223
  Transmission Date: 20100710
  Serious: Yes (Other)
  Sender: FDA-Public Use
  Company Number: PHHY2010BR11286

PATIENT
  Sex: Female

DRUGS (3)
  1. TRILEPTAL [Suspect]
     Dosage: 300 MG, UNK
  2. TEGRETOL-XR [Suspect]
     Dosage: 400 MG, UNK
  3. CARBAMAZEPINE [Suspect]
     Dosage: UNK
     Dates: start: 20100222

REACTIONS (3)
  - CONVULSION [None]
  - DYSPNOEA [None]
  - SOMNOLENCE [None]
